FAERS Safety Report 8838931 (Version 2)
Quarter: 2012Q4

REPORT INFORMATION
  Report Type: 
  Country: PL (occurrence: PL)
  Receive Date: 20121015
  Receipt Date: 20121101
  Transmission Date: 20130627
  Serious: Yes (Other)
  Sender: FDA-Public Use
  Company Number: PL-PAR PHARMACEUTICAL, INC-2012SCPR004660

PATIENT

DRUGS (3)
  1. DEXAMETHASONE [Suspect]
     Indication: IDIOPATHIC THROMBOCYTOPENIC PURPURA
     Dosage: 40 mg, / day
     Route: 065
     Dates: start: 200509
  2. DEXAMETHASONE [Suspect]
     Dosage: UNK
  3. PREDNISONE [Suspect]
     Indication: IDIOPATHIC THROMBOCYTOPENIC PURPURA
     Dosage: 0.5 mg/kg, Unknown
     Route: 065

REACTIONS (3)
  - Adams-Stokes syndrome [Unknown]
  - Hyperglycaemia [Unknown]
  - Bradycardia [Unknown]
